FAERS Safety Report 22036847 (Version 2)
Quarter: 2023Q1

REPORT INFORMATION
  Report Type: Spontaneous
  Country: DE (occurrence: DE)
  Receive Date: 20230225
  Receipt Date: 20230309
  Transmission Date: 20230418
  Serious: Yes (Hospitalization, Other)
  Sender: FDA-Public Use
  Company Number: DE-ASTELLAS-2023EU000143

PATIENT
  Sex: Male

DRUGS (13)
  1. BENDAMUSTINE HYDROCHLORIDE [Suspect]
     Active Substance: BENDAMUSTINE HYDROCHLORIDE
     Indication: Product used for unknown indication
     Dosage: 90 MG/KG, CYCLIC (D1+2
     Route: 042
     Dates: start: 20210517
  2. BENDAMUSTINE HYDROCHLORIDE [Suspect]
     Active Substance: BENDAMUSTINE HYDROCHLORIDE
     Dosage: 90 MG/M2, CYCLIC (4 CYCLES, D1+2)
     Route: 042
     Dates: start: 20210621, end: 202111
  3. BORTEZOMIB [Suspect]
     Active Substance: BORTEZOMIB
     Indication: Plasma cell myeloma
     Dosage: 1.3 MG/M2, CYCLIC (4 CYCLES, D1,4,8,11 Z1-8)
     Route: 058
     Dates: start: 20210628, end: 202111
  4. DEXAMETHASONE [Suspect]
     Active Substance: DEXAMETHASONE
     Indication: Plasma cell myeloma
     Dosage: 20 MILLIGRAM CYCLIC (D1,8,15,22)
     Route: 065
     Dates: start: 202209
  5. DEXAMETHASONE [Suspect]
     Active Substance: DEXAMETHASONE
     Dosage: 20 MG, CYCLIC (4 CYCLES, D1,2,4,5, 8,9,15,16)
     Route: 065
     Dates: start: 20210628, end: 202111
  6. DEXAMETHASONE [Suspect]
     Active Substance: DEXAMETHASONE
     Dosage: 20 MILLIGRAM CYCLIC (D1,8,15,22)
     Route: 065
     Dates: start: 20220719
  7. DEXAMETHASONE [Suspect]
     Active Substance: DEXAMETHASONE
     Dosage: (D1,8,15,22)20 MILLIGRAM CYCLIC (D1,8,15,22)
     Route: 065
     Dates: start: 202208
  8. DEXAMETHASONE [Suspect]
     Active Substance: DEXAMETHASONE
     Dosage: 20 MILLIGRAM CYCLIC (D1,8,15,22)
     Route: 065
     Dates: start: 20220105
  9. CYCLOPHOSPHAMIDE [Suspect]
     Active Substance: CYCLOPHOSPHAMIDE
     Indication: Plasma cell myeloma
     Dosage: 50 MILLIGRAM, CYCLIC (D1-21)
     Route: 065
     Dates: start: 20220105
  10. POMALIDOMIDE [Suspect]
     Active Substance: POMALIDOMIDE
     Indication: Plasma cell myeloma
     Dosage: 4 MILLIGRAM, CYCLICAL (D1-21)
     Route: 065
     Dates: start: 20220105
  11. VENETOCLAX [Concomitant]
     Active Substance: VENETOCLAX
     Indication: Product used for unknown indication
     Dosage: 400 MILLIGRAM (D1-28)
     Route: 065
     Dates: start: 202208
  12. VENETOCLAX [Concomitant]
     Active Substance: VENETOCLAX
     Dosage: 400 MILLIGRAM (D1-28)
     Route: 065
     Dates: start: 202209
  13. VENETOCLAX [Concomitant]
     Active Substance: VENETOCLAX
     Dosage: 200 MILLIGRAM (D1-28)
     Route: 065
     Dates: start: 20220719

REACTIONS (8)
  - Malignant neoplasm progression [Unknown]
  - Pyrexia [Unknown]
  - Neutropenia [Unknown]
  - Pneumonia [Unknown]
  - Rhinovirus infection [Unknown]
  - Febrile neutropenia [Unknown]
  - Off label use [Unknown]
  - Product use issue [Unknown]

NARRATIVE: CASE EVENT DATE: 20220101
